FAERS Safety Report 10605445 (Version 1)
Quarter: 2014Q4

REPORT INFORMATION
  Report Type: Report from Study
  Country: NL (occurrence: NL)
  Receive Date: 20141124
  Receipt Date: 20141124
  Transmission Date: 20150529
  Serious: Yes (Death, Hospitalization, Other)
  Sender: FDA-Public Use
  Company Number: NL-AMGEN-NLDSL2012086733

PATIENT
  Age: 64 Year
  Sex: Female

DRUGS (2)
  1. FRAXIPARINE                        /01437701/ [Concomitant]
     Active Substance: NADROPARIN CALCIUM
  2. ARANESP [Suspect]
     Active Substance: DARBEPOETIN ALFA
     Indication: PRODUCT USED FOR UNKNOWN INDICATION
     Dosage: 0.4 ML (100MCG/ML), Q2WK
     Route: 065
     Dates: start: 20120829

REACTIONS (14)
  - Myalgia [Unknown]
  - Asthenia [Unknown]
  - Gait disturbance [Unknown]
  - Depression [Unknown]
  - Contusion [Unknown]
  - Renal impairment [Unknown]
  - Fatigue [Unknown]
  - Malaise [Unknown]
  - Haematoma [Unknown]
  - Death [Fatal]
  - Feeling abnormal [Unknown]
  - Speech disorder [Unknown]
  - Cerebral haemorrhage [Unknown]
  - Insomnia [Unknown]
